FAERS Safety Report 15053072 (Version 3)
Quarter: 2018Q4

REPORT INFORMATION
  Report Type: Spontaneous
  Country: IN (occurrence: IN)
  Receive Date: 20180622
  Receipt Date: 20181116
  Transmission Date: 20190204
  Serious: Yes (Other)
  Sender: FDA-Public Use
  Company Number: IN-PFIZER INC-2018251355

PATIENT
  Age: 53 Year
  Sex: Female

DRUGS (2)
  1. SHELCAL [Concomitant]
     Dosage: 500 MG, 2X/DAY
  2. AROMASIN [Suspect]
     Active Substance: EXEMESTANE
     Indication: BREAST CANCER
     Dosage: 25 MG, 1X/DAY
     Route: 048
     Dates: start: 20170119

REACTIONS (2)
  - Neuropathy peripheral [Unknown]
  - Pyelonephritis [Recovered/Resolved]
